FAERS Safety Report 5517710-5 (Version None)
Quarter: 2007Q4

REPORT INFORMATION
  Report Type: 
  Country: None (occurrence: None)
  Receive Date: 20071113
  Receipt Date: 20071026
  Transmission Date: 20080405
  Serious: Yes (Other)
  Sender: FDA-Public Use
  Company Number: 2007002093

PATIENT
  Age: 72 Year
  Sex: Female

DRUGS (12)
  1. ERLOTINIB (TABLET) [Suspect]
     Indication: PANCREATIC CARCINOMA METASTATIC
     Dosage: 100 MG, QD, ORAL
     Route: 048
     Dates: start: 20070706, end: 20070914
  2. BEVACIZUMAB (INJECTION FOR INFUSION) [Suspect]
     Dosage: 10 MG/KG, Q2W, INTRAVENOUS DRIP
     Route: 041
     Dates: start: 20070706, end: 20070914
  3. GEMCITABINE [Suspect]
     Dosage: 1000 MG/M2, INTRAVENOUS
     Route: 042
     Dates: start: 20070707, end: 20070914
  4. COLACE (DOCUSATE SODIUM) [Concomitant]
  5. COMPAZINE [Concomitant]
  6. DILAUDID [Concomitant]
  7. FLUCONAZOLE [Concomitant]
  8. GLYBURIDE [Concomitant]
  9. MIRALAX [Concomitant]
  10. PRILOSEC [Concomitant]
  11. REGLAN [Concomitant]
  12. ZOFRAN [Concomitant]

REACTIONS (8)
  - ALANINE AMINOTRANSFERASE INCREASED [None]
  - BLOOD ALKALINE PHOSPHATASE INCREASED [None]
  - BLOOD SODIUM DECREASED [None]
  - DEHYDRATION [None]
  - DISEASE PROGRESSION [None]
  - DRUG TOXICITY [None]
  - LYMPHOCYTE COUNT DECREASED [None]
  - THROMBOCYTOPENIA [None]
